FAERS Safety Report 5310413-1 (Version None)
Quarter: 2007Q2

REPORT INFORMATION
  Report Type: 
  Country: None (occurrence: None)
  Receive Date: 20070427
  Receipt Date: 20070417
  Transmission Date: 20071010
  Serious: Yes (Hospitalization)
  Sender: FDA-Public Use
  Company Number: FR-JNJFOC-20070303143

PATIENT
  Age: 66 Year
  Sex: Female
  Weight: 50 kg

DRUGS (4)
  1. REMICADE [Suspect]
     Indication: PSORIATIC ARTHROPATHY
     Dosage: 250 MG
     Route: 042
  2. REMICADE [Suspect]
     Indication: PSORIASIS
     Dosage: 250 MG
     Route: 042
  3. PROZAC [Concomitant]
     Indication: DEPRESSION
     Dosage: 1/2 TABLET DAILY
     Route: 048
  4. RIVOTRIL [Concomitant]
     Indication: DEPRESSION
     Dosage: 5 DROPS DAILY
     Route: 048

REACTIONS (1)
  - SINUSITIS [None]
